FAERS Safety Report 6152872-0 (Version None)
Quarter: 2009Q2

REPORT INFORMATION
  Report Type: 
  Country: None (occurrence: None)
  Receive Date: 20090409
  Receipt Date: 20090327
  Transmission Date: 20091009
  Serious: Yes (Hospitalization)
  Sender: FDA-Public Use
  Company Number: 233413K09USA

PATIENT
  Age: 54 Year
  Sex: Female
  Weight: 68 kg

DRUGS (3)
  1. REBIF [Suspect]
     Indication: MULTIPLE SCLEROSIS
     Dosage: 44 MCG, 3 IN 1 WEEKS, SUBCUTANEOUS
     Route: 058
     Dates: start: 20070806
  2. COLESTIPOL (COLESTIPOL) [Concomitant]
  3. FLUOXETINE (FLUOXETINE /00724401/) [Concomitant]

REACTIONS (8)
  - ASTHENIA [None]
  - BLADDER DISORDER [None]
  - FALL [None]
  - FLANK PAIN [None]
  - GASTROINTESTINAL MOTILITY DISORDER [None]
  - INCISION SITE INFECTION [None]
  - LUMBAR SPINAL STENOSIS [None]
  - MALAISE [None]
